FAERS Safety Report 6862671-X (Version None)
Quarter: 2010Q3

REPORT INFORMATION
  Report Type: 
  Country: None (occurrence: None)
  Receive Date: 20100716
  Receipt Date: 20100705
  Transmission Date: 20110219
  Serious: Yes (Hospitalization)
  Sender: FDA-Public Use
  Company Number: 1000014994

PATIENT
  Age: 88 Year
  Sex: Female

DRUGS (2)
  1. NEBIVOLOL HCL [Suspect]
     Indication: HYPERTENSION
     Dosage: ORAL
     Route: 048
     Dates: start: 20090701
  2. LEXOMIL [Concomitant]

REACTIONS (1)
  - ECZEMA [None]
